FAERS Safety Report 21069086 (Version 1)
Quarter: 2022Q3

REPORT INFORMATION
  Report Type: Spontaneous
  Country: US (occurrence: US)
  Receive Date: 20220712
  Receipt Date: 20220712
  Transmission Date: 20221026
  Serious: No
  Sender: FDA-Public Use
  Company Number: US-ASTELLAS-2021US040775

PATIENT
  Age: 94 Year
  Sex: Female

DRUGS (1)
  1. MYRBETRIQ [Suspect]
     Active Substance: MIRABEGRON
     Indication: Product used for unknown indication
     Dosage: 25 MG, ONCE DAILY (TOOK FOR ONE WEEK TOTAL AND STOPPED 3 DAYS AGO)
     Route: 065
     Dates: start: 202110, end: 202110

REACTIONS (5)
  - Urinary incontinence [Recovering/Resolving]
  - Micturition urgency [Recovering/Resolving]
  - Condition aggravated [Recovering/Resolving]
  - Urine flow decreased [Recovering/Resolving]
  - Abdominal discomfort [Unknown]

NARRATIVE: CASE EVENT DATE: 20211001
